FAERS Safety Report 5016746-0 (Version None)
Quarter: 2006Q2

REPORT INFORMATION
  Report Type: 
  Country: None (occurrence: None)
  Receive Date: 20060602
  Receipt Date: 20060518
  Transmission Date: 20061013
  Serious: Yes (Disabling)
  Sender: FDA-Public Use
  Company Number: JP-MERCK-0605USA05313

PATIENT
  Age: 86 Year
  Sex: Female

DRUGS (14)
  1. PEPCID RPD [Suspect]
     Route: 048
     Dates: end: 20060501
  2. MAGNESIUM OXIDE [Suspect]
     Route: 065
     Dates: end: 20060501
  3. BASEN [Concomitant]
     Route: 065
     Dates: end: 20060502
  4. INSULIN HUMAN [Concomitant]
     Route: 051
     Dates: end: 20060502
  5. RIFAMPIN [Concomitant]
     Route: 065
     Dates: start: 20051001
  6. ETHAMBUTOL HYDROCHLORIDE [Concomitant]
     Route: 065
     Dates: start: 20051001
  7. ISCOTIN [Concomitant]
     Route: 048
     Dates: start: 20051001
  8. PYDOXAL [Concomitant]
     Route: 048
     Dates: start: 20051001
  9. NORVASC [Concomitant]
     Route: 048
  10. COZAAR [Concomitant]
     Route: 048
  11. CILOSTAZOL [Concomitant]
     Route: 065
  12. BIOFERMIN R [Concomitant]
     Route: 065
  13. PROCYLIN [Concomitant]
     Route: 065
  14. LASIX [Concomitant]
     Route: 065

REACTIONS (5)
  - ASTERIXIS [None]
  - CATAPLEXY [None]
  - DEPRESSED LEVEL OF CONSCIOUSNESS [None]
  - EATING DISORDER [None]
  - SOMNOLENCE [None]
